FAERS Safety Report 10037169 (Version 2)
Quarter: 2014Q1

REPORT INFORMATION
  Report Type: Report from Study
  Country: US (occurrence: US)
  Receive Date: 20140326
  Receipt Date: 20140326
  Transmission Date: 20141002
  Serious: Yes (Hospitalization)
  Sender: FDA-Public Use
  Company Number: US-ALEXION PHARMACEUTICALS INC.-A201203031

PATIENT
  Age: 31 Year
  Sex: Male

DRUGS (5)
  1. SOLIRIS [Suspect]
     Indication: PAROXYSMAL NOCTURNAL HAEMOGLOBINURIA
     Dosage: 900 MG, UNK
     Route: 042
  2. MENACTRA [Concomitant]
  3. LEVAQUIN [Concomitant]
  4. ENBREL [Concomitant]
  5. METHOTREXATE [Concomitant]

REACTIONS (7)
  - Renal infarct [Unknown]
  - Splenic infarction [Unknown]
  - Embolism [Unknown]
  - Pleural effusion [Unknown]
  - Pneumonia [Unknown]
  - Abdominal pain [Unknown]
  - Fatigue [Unknown]
